FAERS Safety Report 4687572-7 (Version None)
Quarter: 2005Q2

REPORT INFORMATION
  Report Type: 
  Country: None (occurrence: None)
  Receive Date: 20050610
  Receipt Date: 20050519
  Transmission Date: 20051028
  Serious: Yes (Disabling)
  Sender: FDA-Public Use
  Company Number: JP-BRISTOL-MYERS SQUIBB COMPANY-12975686

PATIENT
  Age: 74 Year
  Sex: Male

DRUGS (2)
  1. TAXOL [Suspect]
     Indication: GASTRIC CANCER
     Dosage: DOSE UNIT = MG/BODY;  INFUSION ADMINISTERED ON CYCLE DAYS 1, 8 AND 15.
     Route: 042
     Dates: start: 20050502, end: 20050502
  2. TS-1 [Suspect]
     Indication: GASTRIC CANCER
     Dosage: DOSE UNIT = MG/BODY
     Route: 048
     Dates: start: 20050415, end: 20050513

REACTIONS (6)
  - ORAL INTAKE REDUCED [None]
  - PARKINSON'S DISEASE [None]
  - PRODUCTIVE COUGH [None]
  - SALIVARY HYPERSECRETION [None]
  - SLEEP PHASE RHYTHM DISTURBANCE [None]
  - SOMNOLENCE [None]
